FAERS Safety Report 4837475-X (Version None)
Quarter: 2005Q4

REPORT INFORMATION
  Report Type: 
  Country: None (occurrence: None)
  Receive Date: 20051122
  Receipt Date: 20051109
  Transmission Date: 20060501
  Serious: Yes (Other)
  Sender: FDA-Public Use
  Company Number: 2005040650

PATIENT
  Age: 36 Year
  Sex: Male

DRUGS (4)
  1. LYRICA [Suspect]
     Indication: EPILEPSY
     Dosage: 525 MG (1 IN 1 D), ORAL
     Route: 048
     Dates: start: 20050207
  2. TEMOZOLOMIDE (TEMOZOLOMIDE) [Suspect]
     Indication: CHEMOTHERAPY
     Dosage: ORAL
     Route: 048
     Dates: start: 20050101
  3. PHENYTOIN [Concomitant]
  4. CARBAMAZEPINE [Concomitant]

REACTIONS (4)
  - CONDITION AGGRAVATED [None]
  - DIZZINESS [None]
  - DRUG INTERACTION [None]
  - SIMPLE PARTIAL SEIZURES [None]
